FAERS Safety Report 4279147-9 (Version None)
Quarter: 2004Q1

REPORT INFORMATION
  Report Type: 
  Country: None (occurrence: None)
  Receive Date: 20040122
  Receipt Date: 20040113
  Transmission Date: 20041129
  Serious: Yes (Other)
  Sender: FDA-Public Use
  Company Number: K200400042

PATIENT
  Age: 13 Year
  Sex: Male

DRUGS (4)
  1. SYNERCID [Suspect]
     Indication: BLOOD DISORDER
     Dosage: 7.5 MG/KG, TID, INTRAVENOUS; SEE IMAGE
     Route: 042
  2. SYNERCID [Suspect]
     Indication: STREPTOCOCCAL INFECTION
     Dosage: 7.5 MG/KG, TID, INTRAVENOUS; SEE IMAGE
     Route: 042
  3. MEROPENEM [Concomitant]
  4. AMBISOME [Concomitant]

REACTIONS (2)
  - DRUG INEFFECTIVE [None]
  - NEUTROPENIA [None]
